FAERS Safety Report 16189562 (Version 1)
Quarter: 2019Q2

REPORT INFORMATION
  Report Type: Spontaneous
  Country: US (occurrence: US)
  Receive Date: 20190412
  Receipt Date: 20190412
  Transmission Date: 20190711
  Serious: No
  Sender: FDA-Public Use
  Company Number: US-TEVA-2019-US-1037061

PATIENT
  Sex: Female

DRUGS (1)
  1. BUPRENORPHINE. [Suspect]
     Active Substance: BUPRENORPHINE
     Indication: NEURALGIA
     Dosage: STRENGTH:10MCG/HR AND 5MCG/HR
     Route: 062
     Dates: start: 201903

REACTIONS (2)
  - Product prescribing issue [Unknown]
  - Therapeutic product effect incomplete [Unknown]
